FAERS Safety Report 16123116 (Version 2)
Quarter: 2019Q2

REPORT INFORMATION
  Report Type: Report from Study
  Country: US (occurrence: US)
  Receive Date: 20190327
  Receipt Date: 20190408
  Transmission Date: 20190711
  Serious: Yes (Death, Hospitalization, Other)
  Sender: FDA-Public Use
  Company Number: US-ROCHE-2287930

PATIENT
  Age: 70 Year
  Sex: Male
  Weight: 59.93 kg

DRUGS (7)
  1. GUADECITABINE [Suspect]
     Active Substance: GUADECITABINE
     Indication: TRANSITIONAL CELL CARCINOMA METASTATIC
     Route: 058
     Dates: start: 20181112, end: 20190104
  2. METOPROLOL. [Concomitant]
     Active Substance: METOPROLOL
  3. ATEZOLIZUMAB. [Suspect]
     Active Substance: ATEZOLIZUMAB
     Indication: TRANSITIONAL CELL CARCINOMA METASTATIC
     Route: 042
     Dates: start: 20181112
  4. PERCOCET [Concomitant]
     Active Substance: ACETAMINOPHEN\OXYCODONE HYDROCHLORIDE
  5. ATORVASTATIN [Concomitant]
     Active Substance: ATORVASTATIN
  6. OXYCODONE [Concomitant]
     Active Substance: OXYCODONE
  7. SENNA [Concomitant]
     Active Substance: SENNA LEAF\SENNOSIDES\SENNOSIDES A AND B

REACTIONS (5)
  - Dehydration [Unknown]
  - Hepatic failure [Fatal]
  - Fall [Unknown]
  - Thrombocytopenia [Unknown]
  - Anaemia [Unknown]

NARRATIVE: CASE EVENT DATE: 20190122
